FAERS Safety Report 6529523-6 (Version None)
Quarter: 2010Q1

REPORT INFORMATION
  Report Type: 
  Country: None (occurrence: None)
  Receive Date: 20100107
  Receipt Date: 20091228
  Transmission Date: 20100710
  Serious: Yes (Other)
  Sender: FDA-Public Use
  Company Number: JP-BAYER-200914550BYL

PATIENT
  Age: 68 Year
  Sex: Male
  Weight: 48 kg

DRUGS (1)
  1. NEXAVAR [Suspect]
     Indication: RENAL CELL CARCINOMA
     Dosage: UNIT DOSE: 200 MG
     Route: 048
     Dates: start: 20090918, end: 20091104

REACTIONS (6)
  - BRAIN NATRIURETIC PEPTIDE INCREASED [None]
  - HEPATIC FUNCTION ABNORMAL [None]
  - LIPASE INCREASED [None]
  - PLATELET COUNT DECREASED [None]
  - PYREXIA [None]
  - VENTRICULAR HYPOKINESIA [None]
